FAERS Safety Report 8214041-X (Version None)
Quarter: 2012Q1

REPORT INFORMATION
  Report Type: 
  Country: None (occurrence: None)
  Receive Date: 20120314
  Receipt Date: 20120314
  Transmission Date: 20120608
  Serious: Yes (Hospitalization)
  Sender: FDA-Public Use
  Company Number: None

PATIENT
  Age: 78 Year
  Sex: Male

DRUGS (18)
  1. AMARYL [Concomitant]
  2. FISH OIL [Concomitant]
  3. PREDNISONE TAB [Concomitant]
  4. COMPAZINE [Concomitant]
  5. FOLIC ACID [Concomitant]
  6. ZOFRAN [Concomitant]
  7. ADVAIR DISKUS 100/50 [Concomitant]
  8. LOVENOX [Concomitant]
  9. DEMECLOCYCLINE HCL [Concomitant]
  10. CISPLATIN [Suspect]
     Indication: LUNG NEOPLASM MALIGNANT
     Dosage: 60MG/M2 / Q21 DAYS/IV
     Route: 042
  11. DIFLUCAN [Concomitant]
  12. WESTCORT [Concomitant]
  13. CALCIUM WITH VIT D12 [Concomitant]
  14. ZOLOFT [Concomitant]
  15. NEURONTIN [Concomitant]
  16. FLOMAX [Concomitant]
  17. VORNINISTAT [Suspect]
     Indication: LUNG NEOPLASM MALIGNANT
     Dosage: 200MG/1DAILY M,W,F/ORAL
     Route: 048
  18. ATIVAN [Concomitant]

REACTIONS (3)
  - HYPONATRAEMIA [None]
  - SYNCOPE [None]
  - ORTHOSTATIC HYPOTENSION [None]
